FAERS Safety Report 16867078 (Version 1)
Quarter: 2019Q3

REPORT INFORMATION
  Report Type: Spontaneous
  Country: US (occurrence: US)
  Receive Date: 20190930
  Receipt Date: 20190930
  Transmission Date: 20191005
  Serious: No
  Sender: FDA-Public Use
  Company Number: US-GLAXOSMITHKLINE-US2019174062

PATIENT
  Age: 62 Year
  Sex: Female

DRUGS (1)
  1. ABREVA [Suspect]
     Active Substance: DOCOSANOL
     Indication: ORAL HERPES
     Dosage: 1 APPLICATION 5 TIMES ADAY
     Route: 061
     Dates: start: 20190917, end: 20190920

REACTIONS (1)
  - Application site vesicles [Recovered/Resolved]

NARRATIVE: CASE EVENT DATE: 20190919
